FAERS Safety Report 14242441 (Version 1)
Quarter: 2017Q4

REPORT INFORMATION
  Report Type: Spontaneous
  Country: US (occurrence: None)
  Receive Date: 20171130
  Receipt Date: 20171130
  Transmission Date: 20180321
  Serious: No
  Sender: FDA-Public Use
  Company Number: None

PATIENT
  Age: 61 Year
  Sex: Female

DRUGS (2)
  1. VENLAFAXINE ER CAP 75MG ZYDUS [Suspect]
     Active Substance: VENLAFAXINE HYDROCHLORIDE
     Route: 048
     Dates: start: 20170929, end: 20171115
  2. DULOXETINE DR CAP 60MG BRECKENRIDGE [Suspect]
     Active Substance: DULOXETINE
     Route: 048
     Dates: start: 20170622

REACTIONS (3)
  - Gastric disorder [None]
  - Constipation [None]
  - Insomnia [None]

NARRATIVE: CASE EVENT DATE: 20170926
